FAERS Safety Report 8598362 (Version 3)
Quarter: 2012Q4

REPORT INFORMATION
  Report Type: 
  Country: IT (occurrence: IT)
  Receive Date: 20120605
  Receipt Date: 20121112
  Transmission Date: 20130627
  Serious: Yes (Hospitalization, Other)
  Sender: FDA-Public Use
  Company Number: IT-CELGENEUS-083-21880-12052669

PATIENT
  Age: 49 Year
  Sex: Male

DRUGS (2)
  1. REVLIMID [Suspect]
     Indication: 5Q MINUS MDS
     Dosage: 10 Milligram
     Route: 048
     Dates: start: 20071126, end: 200902
  2. REVLIMID [Suspect]
     Dosage: 10 Milligram
     Route: 048
     Dates: start: 201104, end: 20111214

REACTIONS (1)
  - Acute myeloid leukaemia [Not Recovered/Not Resolved]
